FAERS Safety Report 18648919 (Version 1)
Quarter: 2020Q4

REPORT INFORMATION
  Report Type: Spontaneous
  Country: US (occurrence: US)
  Receive Date: 20201221
  Receipt Date: 20201221
  Transmission Date: 20210114
  Serious: No
  Sender: FDA-Public Use
  Company Number: None

PATIENT
  Age: 50 Year
  Sex: Male
  Weight: 71.21 kg

DRUGS (2)
  1. HEPARIN/SODIUM CHLORIDE (HEPARIN NA 50UNT/ML/NACL 0.45% INJ) [Suspect]
     Active Substance: HEPARIN SODIUM
     Indication: DEEP VEIN THROMBOSIS
     Dosage: ?          OTHER STRENGTH:50UNT/ML, 0.45%;?
     Dates: start: 20200718, end: 20200720
  2. HEPARIN/SODIUM CHLORIDE (HEPARIN NA 50UNT/ML/NACL 0.45% INJ) [Suspect]
     Active Substance: HEPARIN SODIUM
     Indication: PULMONARY EMBOLISM
     Dosage: ?          OTHER STRENGTH:50UNT/ML, 0.45%;?
     Dates: start: 20200718, end: 20200720

REACTIONS (12)
  - Dyspnoea [None]
  - Fibrin D dimer increased [None]
  - Decubitus ulcer [None]
  - Rash [None]
  - Oedema peripheral [None]
  - Thrombocytopenia [None]
  - Bedridden [None]
  - Blood fibrinogen decreased [None]
  - International normalised ratio increased [None]
  - Scrotal swelling [None]
  - Pain [None]
  - Haemoglobin decreased [None]

NARRATIVE: CASE EVENT DATE: 20200725
